FAERS Safety Report 4924776-X (Version None)
Quarter: 2006Q1

REPORT INFORMATION
  Report Type: 
  Country: None (occurrence: None)
  Receive Date: 20060127
  Receipt Date: 20051227
  Transmission Date: 20060701
  Serious: No
  Sender: FDA-Public Use
  Company Number: 2006001062

PATIENT
  Age: 64 Year
  Sex: Female
  Weight: 88.4514 kg

DRUGS (2)
  1. LYRICA [Suspect]
     Indication: NEUROPATHY
     Dosage: 150 MG (50 MG, 1 IN 1 D)
     Dates: start: 20051214, end: 20051201
  2. INSULIN [Concomitant]

REACTIONS (3)
  - APHASIA [None]
  - BALANCE DISORDER [None]
  - DIZZINESS [None]
